FAERS Safety Report 8368355-3 (Version None)
Quarter: 2012Q2

REPORT INFORMATION
  Report Type: 
  Country: None (occurrence: None)
  Receive Date: 20120517
  Receipt Date: 20120509
  Transmission Date: 20120825
  Serious: Yes (Other)
  Sender: FDA-Public Use
  Company Number: MX-ELI_LILLY_AND_COMPANY-MX201205003523

PATIENT
  Age: 77 Year
  Sex: Female
  Weight: 62 kg

DRUGS (5)
  1. FORTEO [Suspect]
     Indication: OSTEOPOROSIS
     Dosage: UNK, QD
     Route: 058
  2. ZOLEDRONOC ACID [Concomitant]
  3. ATACAND [Concomitant]
  4. CARBAMAZEPINE [Concomitant]
  5. PINAVERIUM [Concomitant]

REACTIONS (2)
  - HIP FRACTURE [None]
  - UPPER LIMB FRACTURE [None]
